FAERS Safety Report 22258143 (Version 1)
Quarter: 2023Q2

REPORT INFORMATION
  Report Type: Report from Study
  Country: GB (occurrence: GB)
  Receive Date: 20230427
  Receipt Date: 20230427
  Transmission Date: 20230722
  Serious: Yes (Death, Hospitalization)
  Sender: FDA-Public Use
  Company Number: GB-CELLTRION INC.-2023GB008455

PATIENT

DRUGS (45)
  1. BEVACIZUMAB [Suspect]
     Active Substance: BEVACIZUMAB
     Indication: Non-small cell lung cancer
     Dosage: 1700 MG
     Dates: start: 20191115
  2. ATEZOLIZUMAB [Suspect]
     Active Substance: ATEZOLIZUMAB
     Indication: Non-small cell lung cancer
     Dosage: 1200 MG, Q3 WEEKS (24/JUL/2020: DATE OF MOST RECENT DOSE OF ATEZOLIZUMAB PRIOR TO SAE ONSET) (CUMULA
     Route: 042
     Dates: start: 20191115
  3. ATEZOLIZUMAB [Suspect]
     Active Substance: ATEZOLIZUMAB
     Dosage: 1200 MG, Q3 WEEKS (24/JUL/2020: DATE OF MOST RECENT DOSE OF ATEZOLIZUMAB PRIOR TO SAE ONSET) (CUMULA
     Route: 042
     Dates: start: 20191115
  4. ATEZOLIZUMAB [Suspect]
     Active Substance: ATEZOLIZUMAB
     Dosage: 1200 MG, Q3 WEEK (24/JUL/2020: DATE OF MOST RECENT DOSE OF ATEZOLIZUMAB PRIOR TO AE/SAE (1200 MG) ON
     Route: 042
     Dates: start: 20191115
  5. ATEZOLIZUMAB [Suspect]
     Active Substance: ATEZOLIZUMAB
     Dosage: 1200 MG, Q3 WEEK (24/JUL/2020: DATE OF MOST RECENT DOSE OF ATEZOLIZUMAB PRIOR TO AE/SAE (1200 MG) ON
     Route: 042
     Dates: start: 20191115
  6. ATEZOLIZUMAB [Suspect]
     Active Substance: ATEZOLIZUMAB
     Dosage: 1200 MG, Q3 WEEK (24/JUL/2020: DATE OF MOST RECENT DOSE OF ATEZOLIZUMAB PRIOR TO SAE ONSET) (CUMULAT
     Route: 042
     Dates: start: 20191206
  7. ATEZOLIZUMAB [Suspect]
     Active Substance: ATEZOLIZUMAB
     Dosage: 1200 MG, Q3 WEEK (24/JUL/2020: DATE OF MOST RECENT DOSE OF ATEZOLIZUMAB PRIOR TO SAE ONSET) (CUMULAT
     Route: 042
     Dates: start: 20191206
  8. ATEZOLIZUMAB [Suspect]
     Active Substance: ATEZOLIZUMAB
     Dosage: 1200 MG, Q3 WEEK (24/JUL/2020: DATE OF MOST RECENT DOSE OF ATEZOLIZUMAB PRIOR TO SAE ONSET) (CUMULAT
     Route: 042
     Dates: start: 20191227
  9. ATEZOLIZUMAB [Suspect]
     Active Substance: ATEZOLIZUMAB
     Dosage: 1200 MG, Q3 WEEK (24/JUL/2020: DATE OF MOST RECENT DOSE OF ATEZOLIZUMAB PRIOR TO SAE ONSET) (CUMULAT
     Route: 042
     Dates: start: 20191227
  10. ATEZOLIZUMAB [Suspect]
     Active Substance: ATEZOLIZUMAB
     Dosage: 1200 MG, Q3 WEEK (24/JUL/2020: DATE OF MOST RECENT DOSE OF ATEZOLIZUMAB PRIOR TO SAE ONSET) (CUMULAT
     Route: 042
     Dates: start: 20200117
  11. ATEZOLIZUMAB [Suspect]
     Active Substance: ATEZOLIZUMAB
     Dosage: 1200 MG, Q3 WEEK (24/JUL/2020: DATE OF MOST RECENT DOSE OF ATEZOLIZUMAB PRIOR TO SAE ONSET) (CUMULAT
     Route: 042
     Dates: start: 20200117
  12. ATEZOLIZUMAB [Suspect]
     Active Substance: ATEZOLIZUMAB
     Dosage: 1200 MG, Q3 WEEK (24/JUL/2020: DATE OF MOST RECENT DOSE OF ATEZOLIZUMAB PRIOR TO SAE ONSET) (CUMULAT
     Route: 042
     Dates: start: 20200207
  13. ATEZOLIZUMAB [Suspect]
     Active Substance: ATEZOLIZUMAB
     Dosage: 1200 MG, Q3 WEEK (24/JUL/2020: DATE OF MOST RECENT DOSE OF ATEZOLIZUMAB PRIOR TO SAE ONSET) (CUMULAT
     Route: 042
     Dates: start: 20200207
  14. ATEZOLIZUMAB [Suspect]
     Active Substance: ATEZOLIZUMAB
     Dosage: 1200 MG, Q3 WEEK (24/JUL/2020: DATE OF MOST RECENT DOSE OF ATEZOLIZUMAB PRIOR TO SAE ONSET) (3597.61
     Route: 042
     Dates: start: 20200228
  15. ATEZOLIZUMAB [Suspect]
     Active Substance: ATEZOLIZUMAB
     Dosage: 1200 MG, Q3 WEEK (24/JUL/2020: DATE OF MOST RECENT DOSE OF ATEZOLIZUMAB PRIOR TO SAE ONSET) (3597.61
     Route: 042
     Dates: start: 20200228
  16. ATEZOLIZUMAB [Suspect]
     Active Substance: ATEZOLIZUMAB
     Dosage: 1200 MG, Q3 WEEK (24/JUL/2020: DATE OF MOST RECENT DOSE OF ATEZOLIZUMAB PRIOR TO SAE ONSET)  (CUMULA
     Route: 042
     Dates: start: 20200320
  17. ATEZOLIZUMAB [Suspect]
     Active Substance: ATEZOLIZUMAB
     Dosage: 1200 MG, Q3 WEEK (24/JUL/2020: DATE OF MOST RECENT DOSE OF ATEZOLIZUMAB PRIOR TO SAE ONSET)  (CUMULA
     Route: 042
     Dates: start: 20200320
  18. ATEZOLIZUMAB [Suspect]
     Active Substance: ATEZOLIZUMAB
     Dosage: 1200 MG, Q3 WEEKS (24/JUL/2020: DATE OF MOST RECENT DOSE OF ATEZOLIZUMAB PRIOR TO SAE ONSET) (CUMULA
     Route: 042
     Dates: start: 20200501
  19. ATEZOLIZUMAB [Suspect]
     Active Substance: ATEZOLIZUMAB
     Dosage: 1200 MG, Q3 WEEKS (24/JUL/2020: DATE OF MOST RECENT DOSE OF ATEZOLIZUMAB PRIOR TO SAE ONSET) (CUMULA
     Route: 042
     Dates: start: 20200501
  20. ATEZOLIZUMAB [Suspect]
     Active Substance: ATEZOLIZUMAB
     Dosage: 1200 MG, Q3 WEEKS (24/JUL/2020: DATE OF MOST RECENT DOSE OF ATEZOLIZUMAB PRIOR TO SAE ONSET) (CUMULA
     Route: 042
     Dates: start: 20200612
  21. ATEZOLIZUMAB [Suspect]
     Active Substance: ATEZOLIZUMAB
     Dosage: 1200 MG, Q3 WEEKS (24/JUL/2020: DATE OF MOST RECENT DOSE OF ATEZOLIZUMAB PRIOR TO SAE ONSET) (CUMULA
     Route: 042
     Dates: start: 20200612
  22. ATEZOLIZUMAB [Suspect]
     Active Substance: ATEZOLIZUMAB
     Dosage: 1200 MG, Q3 WEEK  (CUMULATIVE DOSE TO FIRST REACTION: 3600 MG)
     Route: 042
     Dates: start: 20200703
  23. ATEZOLIZUMAB [Suspect]
     Active Substance: ATEZOLIZUMAB
     Dosage: 1200 MG, Q3 WEEK (CUMULATIVE DOSE TO FIRST REACTION: 3600 MG)
     Route: 042
     Dates: start: 20200703
  24. CARBOPLATIN [Suspect]
     Active Substance: CARBOPLATIN
     Indication: Non-small cell lung cancer
     Dosage: 768 MG
     Dates: start: 20191115
  25. PACLITAXEL [Suspect]
     Active Substance: PACLITAXEL
     Indication: Non-small cell lung cancer
     Dosage: 350 MG
     Dates: start: 20191115
  26. AMLODIPINE [Concomitant]
     Active Substance: AMLODIPINE BESYLATE
     Indication: Hypertension
     Dosage: DOSE: 1, QD
     Dates: start: 20201013, end: 20201013
  27. AMLODIPINE [Concomitant]
     Active Substance: AMLODIPINE BESYLATE
     Dosage: DOSE: 1, QD
     Dates: start: 20210813
  28. AUGMENTIN [Concomitant]
     Active Substance: AMOXICILLIN\CLAVULANATE POTASSIUM
     Indication: Pyrexia
     Dosage: DOSE: 3, QD
     Dates: start: 20191120, end: 20191127
  29. BECLOMETHASONE [Concomitant]
     Active Substance: BECLOMETHASONE
     Indication: Asthma
     Dosage: DOSE: 1, AS NECESSARY
  30. DOXAZOSIN [Concomitant]
     Active Substance: DOXAZOSIN MESYLATE
     Dosage: DOSE: 1, QD
     Dates: start: 202004, end: 20200808
  31. DOXAZOSIN [Concomitant]
     Active Substance: DOXAZOSIN MESYLATE
     Dosage: DOSE: 1, QD
     Dates: start: 20200804
  32. ERLOTINIB [Concomitant]
     Active Substance: ERLOTINIB
     Indication: Neoplasm malignant
  33. LOSARTAN [Concomitant]
     Active Substance: LOSARTAN
     Dosage: DOSE: 1, QD
     Dates: start: 202006, end: 20200808
  34. LOSARTAN [Concomitant]
     Active Substance: LOSARTAN
     Dosage: DOSE: 1, QD
     Dates: start: 20200809
  35. METFORMIN [Concomitant]
     Active Substance: METFORMIN HYDROCHLORIDE
     Indication: Type 2 diabetes mellitus
     Dosage: DOSE:2, QD
     Route: 048
     Dates: start: 20200731
  36. METFORMIN [Concomitant]
     Active Substance: METFORMIN HYDROCHLORIDE
     Dosage: DOSE:2, QD
     Route: 048
     Dates: start: 20200731
  37. METFORMIN [Concomitant]
     Active Substance: METFORMIN HYDROCHLORIDE
     Dosage: DOSE:2, QD
     Route: 048
     Dates: start: 20200731
  38. METFORMIN [Concomitant]
     Active Substance: METFORMIN HYDROCHLORIDE
     Dosage: DOSE:2, QD
     Route: 048
     Dates: start: 20200731
  39. MORPHINE [Concomitant]
     Active Substance: MORPHINE
     Dosage: DOSE:1, AS NECESSARY
     Dates: start: 20200809, end: 20200814
  40. OSIMERTINIB [Concomitant]
     Active Substance: OSIMERTINIB
     Dosage: UNK
     Dates: start: 20210519
  41. ALBUTEROL [Concomitant]
     Active Substance: ALBUTEROL
     Indication: Asthma
     Dosage: DOSE: 1, AS NECESSARY
  42. SITAGLIPTIN [Concomitant]
     Active Substance: SITAGLIPTIN
     Indication: Type 2 diabetes mellitus
     Dosage: DOSE: 1, 1 DAY
     Dates: start: 202007
  43. SITAGLIPTIN [Concomitant]
     Active Substance: SITAGLIPTIN
     Dosage: DOSE: 2, 1 DAY
     Dates: start: 20200809
  44. SPIRONOLACTONE [Concomitant]
     Active Substance: SPIRONOLACTONE
     Dosage: DOSE:1, 1 DAY
     Dates: start: 20200803
  45. SPIRONOLACTONE [Concomitant]
     Active Substance: SPIRONOLACTONE
     Dosage: DOSE:1, 1 DAY
     Dates: start: 20200809, end: 20200818

REACTIONS (8)
  - Death [Fatal]
  - Oedema peripheral [Recovered/Resolved]
  - Left ventricular dysfunction [Not Recovered/Not Resolved]
  - Proteinuria [Recovered/Resolved]
  - Cough [Recovered/Resolved]
  - Scrotal oedema [Unknown]
  - Cough [Unknown]
  - Underdose [Unknown]

NARRATIVE: CASE EVENT DATE: 20200501
